FAERS Safety Report 12960150 (Version 1)
Quarter: 2016Q4

REPORT INFORMATION
  Report Type: Spontaneous
  Country: US (occurrence: US)
  Receive Date: 20161119
  Receipt Date: 20161119
  Transmission Date: 20170207
  Serious: No
  Sender: FDA-Public Use
  Company Number: None

PATIENT
  Age: 24 Year
  Sex: Female
  Weight: 91.8 kg

DRUGS (7)
  1. LATUDA [Concomitant]
     Active Substance: LURASIDONE HYDROCHLORIDE
  2. TOPICAL MEDICATIONS [Concomitant]
     Active Substance: UNSPECIFIED INGREDIENT
  3. BUSPIRONE HYDROCHLORIDE. [Suspect]
     Active Substance: BUSPIRONE HYDROCHLORIDE
     Indication: ANXIETY
     Dosage: ?          QUANTITY:1 TABLET(S);?
     Route: 048
     Dates: start: 20161023, end: 20161106
  4. WILD ALASKAN FISH OIL [Concomitant]
  5. BUSPIRONE HYDROCHLORIDE. [Suspect]
     Active Substance: BUSPIRONE HYDROCHLORIDE
     Indication: HYPERHIDROSIS
     Dosage: ?          QUANTITY:1 TABLET(S);?
     Route: 048
     Dates: start: 20161023, end: 20161106
  6. CINNAMON. [Concomitant]
     Active Substance: CINNAMON
  7. ONE A DAY WOMEN^S DAILY MULTIVITAMIN [Concomitant]

REACTIONS (3)
  - Coordination abnormal [None]
  - Paraesthesia [None]
  - Dyskinesia [None]

NARRATIVE: CASE EVENT DATE: 20161023
